FAERS Safety Report 6042987-X (Version None)
Quarter: 2009Q1

REPORT INFORMATION
  Report Type: 
  Country: None (occurrence: None)
  Receive Date: 20090119
  Receipt Date: 20090105
  Transmission Date: 20090719
  Serious: Yes (Death, Hospitalization, Other)
  Sender: FDA-Public Use
  Company Number: GB-ROCHE-604143

PATIENT
  Age: 36 Year
  Sex: Female

DRUGS (8)
  1. MYCOPHENOLATE MOFETIL [Suspect]
     Indication: IMMUNOSUPPRESSION
     Route: 065
  2. MYCOPHENOLATE MOFETIL [Suspect]
     Route: 065
  3. AZATHIOPRINE [Suspect]
     Indication: IMMUNOSUPPRESSION
     Route: 065
  4. AZATHIOPRINE [Suspect]
     Route: 065
  5. CYCLOSPORINE [Suspect]
     Indication: IMMUNOSUPPRESSION
     Route: 065
  6. PREDNISOLONE [Suspect]
     Indication: IMMUNOSUPPRESSION
     Dosage: CO-INDICATION: MYELOFIBROSIS
     Route: 065
  7. PREDNISOLONE [Suspect]
     Dosage: DOSE INCREASED, UPTO 60 MG DAILY, DOSE AS: 1MG/KG
     Route: 065
  8. THALIDOMIDE [Suspect]
     Dosage: OTHER INDICATION: STEROID SPARING AGENT
     Route: 065
     Dates: start: 20051001

REACTIONS (4)
  - ACUTE MYELOID LEUKAEMIA [None]
  - MICROANGIOPATHY [None]
  - PANCYTOPENIA [None]
  - PYREXIA [None]
